FAERS Safety Report 23640049 (Version 2)
Quarter: 2024Q1

REPORT INFORMATION
  Report Type: Spontaneous
  Country: US (occurrence: US)
  Receive Date: 20240317
  Receipt Date: 20240324
  Transmission Date: 20240409
  Serious: Yes (Death, Life-Threatening, Hospitalization, Other)
  Sender: FDA-Public Use
  Company Number: US-SANDOZ-SDZ2024US028345

PATIENT
  Age: 40 Year
  Sex: Male

DRUGS (1)
  1. PIPERACILLIN AND TAZOBACTAM [Suspect]
     Active Substance: PIPERACILLIN SODIUM\TAZOBACTAM SODIUM
     Indication: Sepsis
     Route: 065

REACTIONS (2)
  - Stevens-Johnson syndrome [Fatal]
  - Cytomegalovirus infection reactivation [Fatal]
